FAERS Safety Report 19304809 (Version 1)
Quarter: 2021Q2

REPORT INFORMATION
  Report Type: Spontaneous
  Country: US (occurrence: US)
  Receive Date: 20210525
  Receipt Date: 20210525
  Transmission Date: 20210717
  Serious: No
  Sender: FDA-Public Use
  Company Number: US-ORGANON-O2105USA001832

PATIENT
  Sex: Female

DRUGS (1)
  1. NEXPLANON [Suspect]
     Active Substance: ETONOGESTREL
     Indication: CONTRACEPTION
     Dosage: 1 IMPLANT
     Route: 059
     Dates: start: 20190214, end: 20210519

REACTIONS (4)
  - Emotional disorder [Unknown]
  - Device breakage [Recovered/Resolved]
  - Weight increased [Unknown]
  - Depression [Unknown]

NARRATIVE: CASE EVENT DATE: 20210519
